FAERS Safety Report 25767926 (Version 1)
Quarter: 2025Q3

REPORT INFORMATION
  Report Type: Spontaneous
  Country: US (occurrence: US)
  Receive Date: 20250905
  Receipt Date: 20250905
  Transmission Date: 20251021
  Serious: No
  Sender: DOMPE FARMACEUTICI
  Company Number: US-FARMAPROD-202505-1625

PATIENT
  Sex: Female
  Weight: 79.38 kg

DRUGS (16)
  1. OXERVATE [Suspect]
     Active Substance: CENEGERMIN-BKBJ
     Indication: Neurotrophic keratopathy
     Route: 047
     Dates: start: 20250428
  2. SYSTANE (HYPROMELLOSE 2910 (4000 MPA.S)) [Concomitant]
     Active Substance: HYPROMELLOSE 2910 (4000 MPA.S)
  3. ACETAMINOPHEN [Concomitant]
     Active Substance: ACETAMINOPHEN
  4. PROBIOTIC-10 [Concomitant]
  5. MELATONIN [Concomitant]
     Active Substance: MELATONIN
  6. XANAX [Concomitant]
     Active Substance: ALPRAZOLAM
  7. TRAMADOL HCL [Concomitant]
     Active Substance: TRAMADOL HYDROCHLORIDE
  8. HYDROXYCHLOROQUINE SULFATE [Concomitant]
     Active Substance: HYDROXYCHLOROQUINE SULFATE
  9. ASPIRIN [Concomitant]
     Active Substance: ASPIRIN
  10. ATORVASTATIN CALCIUM [Concomitant]
     Active Substance: ATORVASTATIN CALCIUM
  11. LYRICA [Concomitant]
     Active Substance: PREGABALIN
  12. IRBESARTAN [Concomitant]
     Active Substance: IRBESARTAN
  13. METOPROLOL SUCCINATE [Concomitant]
     Active Substance: METOPROLOL SUCCINATE
  14. LEVOTHYROXINE SODIUM [Concomitant]
     Active Substance: LEVOTHYROXINE SODIUM
  15. PILOCARPINE HYDROCHLORIDE [Concomitant]
     Active Substance: PILOCARPINE HYDROCHLORIDE
  16. ACYCLOVIR [Concomitant]
     Active Substance: ACYCLOVIR

REACTIONS (6)
  - Abdominal discomfort [Unknown]
  - Nausea [Unknown]
  - Eye pain [Unknown]
  - Ocular discomfort [Unknown]
  - Eye irritation [Unknown]
  - Foreign body sensation in eyes [Unknown]
